FAERS Safety Report 21221268 (Version 1)
Quarter: 2022Q3

REPORT INFORMATION
  Report Type: Other
  Country: CA (occurrence: CA)
  Receive Date: 20220817
  Receipt Date: 20220817
  Transmission Date: 20221026
  Serious: Yes (Hospitalization, Other)
  Sender: FDA-Public Use
  Company Number: CA-APOTEX-2022AP011264

PATIENT
  Age: 68 Year
  Sex: Female
  Weight: 75 kg

DRUGS (3)
  1. AMBRISENTAN [Suspect]
     Active Substance: AMBRISENTAN
     Indication: Pulmonary arterial hypertension
     Dosage: 5 MILLIGRAM
     Route: 065
  2. RIOCIGUAT [Suspect]
     Active Substance: RIOCIGUAT
     Indication: Pulmonary arterial hypertension
     Dosage: 1 MILLIGRAM, TID
     Route: 065
  3. RIOCIGUAT [Suspect]
     Active Substance: RIOCIGUAT
     Dosage: 1.5 MILLIGRAM, TID
     Route: 065

REACTIONS (2)
  - Acute kidney injury [Unknown]
  - Right ventricular failure [Unknown]
